FAERS Safety Report 9790215 (Version 5)
Quarter: 2014Q2

REPORT INFORMATION
  Report Type: Spontaneous
  Country: JP (occurrence: JP)
  Receive Date: 20131231
  Receipt Date: 20140415
  Transmission Date: 20141212
  Serious: Yes (Death, Life-Threatening)
  Sender: FDA-Public Use
  Company Number: JP-JNJFOC-20131216953

PATIENT
  Age: 76 Year
  Sex: Female

DRUGS (4)
  1. REMICADE [Suspect]
     Indication: RHEUMATOID ARTHRITIS
     Route: 042
     Dates: end: 20110120
  2. METHOTREXATE [Suspect]
     Indication: RHEUMATOID ARTHRITIS
     Dosage: STARTED BEFORE TEN YEARS.
     Route: 048
  3. URSODEOXYCHOLIC ACID [Concomitant]
     Indication: AUTOIMMUNE HEPATITIS
     Route: 048
  4. PREDNISOLONE [Concomitant]
     Indication: AUTOIMMUNE HEPATITIS
     Route: 065

REACTIONS (3)
  - Aortic aneurysm rupture [Fatal]
  - Diffuse large B-cell lymphoma [Recovered/Resolved]
  - Anaemia [Unknown]
